FAERS Safety Report 18984981 (Version 1)
Quarter: 2021Q1

REPORT INFORMATION
  Report Type: Spontaneous
  Country: US (occurrence: US)
  Receive Date: 20210309
  Receipt Date: 20210309
  Transmission Date: 20210420
  Serious: No
  Sender: FDA-Public Use
  Company Number: US-GLENMARK PHARMACEUTICALS-2021GMK051706

PATIENT

DRUGS (1)
  1. IMIQUIMOD CREAM USP, 5% [Suspect]
     Active Substance: IMIQUIMOD
     Indication: SKIN CANCER
     Dosage: UNK
     Route: 065
     Dates: start: 2020

REACTIONS (1)
  - Product use in unapproved indication [Unknown]

NARRATIVE: CASE EVENT DATE: 2020
